FAERS Safety Report 8499175-7 (Version None)
Quarter: 2012Q2

REPORT INFORMATION
  Report Type: 
  Country: None (occurrence: None)
  Receive Date: 20120405
  Receipt Date: 20100720
  Transmission Date: 20120825
  Serious: Yes (Other)
  Sender: FDA-Public Use
  Company Number: PHHY2010US42601

PATIENT
  Age: 62 Year
  Sex: Female

DRUGS (1)
  1. RECLAST [Suspect]
     Indication: OSTEOPOROSIS
     Dosage: 5MG/100ML ONCE YEARLY, INTRAVENOUS
     Route: 042
     Dates: start: 20100603

REACTIONS (7)
  - BLOOD UREA DECREASED [None]
  - CARBON DIOXIDE DECREASED [None]
  - MYALGIA [None]
  - MUSCLE SPASMS [None]
  - PROTEIN TOTAL DECREASED [None]
  - PAIN IN EXTREMITY [None]
  - LIMB DISCOMFORT [None]
